FAERS Safety Report 7419742-9 (Version None)
Quarter: 2011Q2

REPORT INFORMATION
  Report Type: 
  Country: None (occurrence: None)
  Receive Date: 20110412
  Receipt Date: 20110412
  Transmission Date: 20111010
  Serious: Yes (Other)
  Sender: FDA-Public Use
  Company Number: None

PATIENT
  Age: 59 Year
  Sex: Female
  Weight: 67.586 kg

DRUGS (1)
  1. CYMBALTA [Suspect]
     Indication: NEUROPATHY PERIPHERAL
     Dosage: 60MG QD PO
     Route: 048
     Dates: start: 20090409, end: 20110220

REACTIONS (9)
  - ANXIETY [None]
  - NAUSEA [None]
  - DISTURBANCE IN ATTENTION [None]
  - PARAESTHESIA [None]
  - AMNESIA [None]
  - DEPRESSION [None]
  - DIARRHOEA [None]
  - DIZZINESS [None]
  - DRUG WITHDRAWAL SYNDROME [None]
